FAERS Safety Report 6826930-9 (Version None)
Quarter: 2010Q3

REPORT INFORMATION
  Report Type: 
  Country: None (occurrence: None)
  Receive Date: 20100709
  Receipt Date: 20100628
  Transmission Date: 20110219
  Serious: Yes (Other)
  Sender: FDA-Public Use
  Company Number: US-JNJFOC-20100608557

PATIENT
  Sex: Female

DRUGS (22)
  1. REMICADE [Suspect]
     Indication: PSORIATIC ARTHROPATHY
     Route: 042
  2. REMICADE [Suspect]
     Indication: PSORIASIS
     Route: 042
  3. TRICOR [Concomitant]
     Indication: BLOOD CHOLESTEROL INCREASED
  4. POTASSIUM [Concomitant]
  5. OXYGEN [Concomitant]
     Indication: PULMONARY FIBROSIS
  6. ZETIA [Concomitant]
     Indication: BLOOD CHOLESTEROL INCREASED
  7. LOVASTATIN [Concomitant]
     Indication: BLOOD CHOLESTEROL INCREASED
  8. AVAPRO [Concomitant]
     Indication: HYPERTENSION
  9. LASIX [Concomitant]
     Indication: OEDEMA PERIPHERAL
  10. SYNTHROID [Concomitant]
  11. ESTRACE [Concomitant]
     Indication: HORMONE REPLACEMENT THERAPY
  12. LEXAPRO [Concomitant]
     Indication: ANTIDEPRESSANT THERAPY
  13. ADVAIR DISKUS 100/50 [Concomitant]
  14. SPIRIVA [Concomitant]
  15. ALBUTEROL [Concomitant]
  16. PULMICORT [Concomitant]
  17. FLEXERIL [Concomitant]
     Indication: FIBROMYALGIA
  18. ELAVIL [Concomitant]
     Indication: FIBROMYALGIA
  19. LOVAZA [Concomitant]
     Indication: BLOOD CHOLESTEROL INCREASED
  20. VITAMIN TAB [Concomitant]
  21. CALCIUM CARBONATE [Concomitant]
  22. SLEEPING PILLS (NOS) [Concomitant]

REACTIONS (5)
  - HYPERHIDROSIS [None]
  - INFUSION RELATED REACTION [None]
  - PSORIASIS [None]
  - RASH [None]
  - RENAL IMPAIRMENT [None]
